FAERS Safety Report 16520757 (Version 1)
Quarter: 2019Q3

REPORT INFORMATION
  Report Type: Spontaneous
  Country: US (occurrence: US)
  Receive Date: 20190702
  Receipt Date: 20190702
  Transmission Date: 20191004
  Serious: No
  Sender: FDA-Public Use
  Company Number: US-GALDERMA-US18039788

PATIENT
  Age: 16 Year
  Sex: Male

DRUGS (23)
  1. MINOCYCLINE [Concomitant]
     Active Substance: MINOCYCLINE HYDROCHLORIDE
     Indication: SKIN BURNING SENSATION
  2. MINOCYCLINE [Concomitant]
     Active Substance: MINOCYCLINE HYDROCHLORIDE
     Indication: PRURITUS
  3. ISOTRETINOIN. [Concomitant]
     Active Substance: ISOTRETINOIN
     Indication: RASH
  4. PROACTIV MD ADAPALENE ACNE TREATMENT [Suspect]
     Active Substance: ADAPALENE
     Indication: PRODUCT USED FOR UNKNOWN INDICATION
     Dosage: 0.1%
     Route: 061
     Dates: start: 20180416, end: 201805
  5. ISOTRETINOIN. [Concomitant]
     Active Substance: ISOTRETINOIN
     Indication: ACNE
  6. ISOTRETINOIN. [Concomitant]
     Active Substance: ISOTRETINOIN
     Indication: SKIN HYPERPIGMENTATION
  7. ISOTRETINOIN. [Concomitant]
     Active Substance: ISOTRETINOIN
     Indication: SKIN EXFOLIATION
  8. ISOTRETINOIN. [Concomitant]
     Active Substance: ISOTRETINOIN
     Indication: ERYTHEMA
  9. PROACTIV SOLUTION BLACKHEAD DISSOLVING [Concomitant]
     Active Substance: SALICYLIC ACID
     Indication: PRODUCT USED FOR UNKNOWN INDICATION
     Route: 061
     Dates: start: 20180416, end: 201805
  10. PROACTIV MD DEEP CLEANSING FACE WASH [Concomitant]
     Active Substance: COSMETICS
     Route: 061
     Dates: start: 20180416, end: 201805
  11. MINOCYCLINE [Concomitant]
     Active Substance: MINOCYCLINE HYDROCHLORIDE
     Indication: ACNE
  12. MINOCYCLINE [Concomitant]
     Active Substance: MINOCYCLINE HYDROCHLORIDE
     Indication: SKIN HYPERPIGMENTATION
  13. ISOTRETINOIN. [Concomitant]
     Active Substance: ISOTRETINOIN
     Indication: SKIN BURNING SENSATION
  14. PROACTIV MD DAILY OIL CONTROL SPF 30 [Suspect]
     Active Substance: AVOBENZONE\OCTISALATE\OCTOCRYLENE
     Indication: PRODUCT USED FOR UNKNOWN INDICATION
     Route: 061
     Dates: start: 20180416, end: 201805
  15. MINOCYCLINE [Concomitant]
     Active Substance: MINOCYCLINE HYDROCHLORIDE
     Indication: SKIN EXFOLIATION
  16. MINOCYCLINE [Concomitant]
     Active Substance: MINOCYCLINE HYDROCHLORIDE
     Indication: ERYTHEMA
  17. MINOCYCLINE [Concomitant]
     Active Substance: MINOCYCLINE HYDROCHLORIDE
     Indication: SKIN TIGHTNESS
  18. ISOTRETINOIN. [Concomitant]
     Active Substance: ISOTRETINOIN
     Indication: SKIN TIGHTNESS
  19. MINOCYCLINE [Concomitant]
     Active Substance: MINOCYCLINE HYDROCHLORIDE
     Indication: SKIN REACTION
  20. ISOTRETINOIN. [Concomitant]
     Active Substance: ISOTRETINOIN
     Indication: SKIN REACTION
  21. PROACTIV DEEP CLEANSING WASH [Concomitant]
     Active Substance: SALICYLIC ACID
     Indication: PRODUCT USED FOR UNKNOWN INDICATION
     Route: 061
     Dates: start: 20180416, end: 201805
  22. MINOCYCLINE [Concomitant]
     Active Substance: MINOCYCLINE HYDROCHLORIDE
     Indication: RASH
  23. ISOTRETINOIN. [Concomitant]
     Active Substance: ISOTRETINOIN
     Indication: PRURITUS

REACTIONS (9)
  - Skin exfoliation [Recovering/Resolving]
  - Skin tightness [Recovering/Resolving]
  - Skin reaction [Recovering/Resolving]
  - Skin hyperpigmentation [Recovering/Resolving]
  - Acne [Recovering/Resolving]
  - Skin burning sensation [Recovering/Resolving]
  - Rash [Recovering/Resolving]
  - Pruritus [Recovering/Resolving]
  - Erythema [Recovering/Resolving]

NARRATIVE: CASE EVENT DATE: 20180419
